FAERS Safety Report 5657385-8 (Version None)
Quarter: 2008Q1

REPORT INFORMATION
  Report Type: 
  Country: None (occurrence: None)
  Receive Date: 20080307
  Receipt Date: 20080307
  Transmission Date: 20080703
  Serious: Yes (Other)
  Sender: FDA-Public Use
  Company Number: None

PATIENT
  Age: 46 Year
  Sex: Female
  Weight: 81.6475 kg

DRUGS (1)
  1. TAMIFLU [Suspect]
     Indication: INFLUENZA IMMUNISATION
     Dosage: 75MG QD PO
     Route: 048
     Dates: start: 20080226, end: 20080305

REACTIONS (1)
  - INTERNATIONAL NORMALISED RATIO INCREASED [None]
